FAERS Safety Report 10780462 (Version 1)
Quarter: 2015Q1

REPORT INFORMATION
  Report Type: Spontaneous
  Country: US (occurrence: US)
  Receive Date: 20150210
  Receipt Date: 20150210
  Transmission Date: 20150721
  Serious: No
  Sender: FDA-Public Use
  Company Number: US-GLAXOSMITHKLINE-A1087283A

PATIENT

DRUGS (12)
  1. CELEXA [Concomitant]
     Active Substance: CITALOPRAM HYDROBROMIDE
  2. MS CONTIN [Concomitant]
     Active Substance: MORPHINE SULFATE
  3. HERCEPTIN [Concomitant]
     Active Substance: TRASTUZUMAB
  4. COREG [Concomitant]
     Active Substance: CARVEDILOL
  5. PRILOSEC [Concomitant]
     Active Substance: OMEPRAZOLE MAGNESIUM
  6. CALCIUM + VIT D [Concomitant]
     Active Substance: CALCIUM\VITAMIN D
  7. COLACE [Concomitant]
     Active Substance: DOCUSATE SODIUM
  8. NEURONTIN [Concomitant]
     Active Substance: GABAPENTIN
  9. LISINOPRIL-HYDROCHLOROTHIAZIDE [Concomitant]
     Active Substance: HYDROCHLOROTHIAZIDE\LISINOPRIL
  10. TYKERB [Suspect]
     Active Substance: LAPATINIB DITOSYLATE
     Indication: BREAST CANCER
     Route: 048
     Dates: start: 20140723
  11. MULTIVITAMINS [Concomitant]
     Active Substance: VITAMINS
  12. MORPHINE SULFATE. [Concomitant]
     Active Substance: MORPHINE SULFATE

REACTIONS (2)
  - Diarrhoea [Unknown]
  - Dermatitis acneiform [Unknown]
